FAERS Safety Report 5007187-0 (Version None)
Quarter: 2006Q1

REPORT INFORMATION
  Report Type: 
  Country: None (occurrence: None)
  Receive Date: 20060327
  Receipt Date: 20051206
  Transmission Date: 20060701
  Serious: Yes (Hospitalization)
  Sender: FDA-Public Use
  Company Number: 220132

PATIENT
  Age: 69 Year
  Sex: Female

DRUGS (2)
  1. AVASTIN [Suspect]
     Indication: NON-SMALL CELL LUNG CANCER
     Dosage: QQW
     Dates: start: 20050601
  2. NAVELBINE [Concomitant]

REACTIONS (1)
  - NEUTROPENIA [None]
